FAERS Safety Report 4695586-6 (Version None)
Quarter: 2005Q2

REPORT INFORMATION
  Report Type: 
  Country: None (occurrence: None)
  Receive Date: 20050524
  Receipt Date: 20050324
  Transmission Date: 20051028
  Serious: Yes (Other)
  Sender: FDA-Public Use
  Company Number: 2005CG00608

PATIENT
  Age: 858 Month
  Sex: Male
  Weight: 63 kg

DRUGS (3)
  1. NEXIUM [Suspect]
     Indication: HIATUS HERNIA
     Route: 048
     Dates: start: 20020101, end: 20050101
  2. NEXIUM [Suspect]
     Indication: GASTROOESOPHAGEAL REFLUX DISEASE
     Route: 048
     Dates: start: 20020101, end: 20050101
  3. LIPANTHYL [Concomitant]
     Route: 048

REACTIONS (2)
  - METAMORPHOPSIA [None]
  - VISUAL ACUITY REDUCED [None]
